FAERS Safety Report 7813140-1 (Version None)
Quarter: 2011Q4

REPORT INFORMATION
  Report Type: 
  Country: None (occurrence: None)
  Receive Date: 20111013
  Receipt Date: 20110929
  Transmission Date: 20120403
  Serious: Yes (Hospitalization)
  Sender: FDA-Public Use
  Company Number: JP-ROCHE-797590

PATIENT
  Age: 61 Year
  Sex: Female

DRUGS (4)
  1. ACTEMRA [Suspect]
     Indication: RHEUMATOID ARTHRITIS
     Dosage: DOSAGE WAS UNCERTAIN
     Route: 041
     Dates: start: 20110329, end: 20110622
  2. RHEUMATREX [Concomitant]
     Dosage: INFUSION RATE DECREASED
     Dates: start: 20080101
  3. MEDROL [Concomitant]
     Dosage: INFUSION RATE DECREASED
     Route: 048
     Dates: start: 20090101
  4. WARFARIN SODIUM [Suspect]
     Indication: EMBOLISM VENOUS
     Dosage: DOSAGE UNCERTAIN
     Route: 048

REACTIONS (1)
  - DIVERTICULUM INTESTINAL HAEMORRHAGIC [None]
